FAERS Safety Report 5703013-2 (Version None)
Quarter: 2008Q2

REPORT INFORMATION
  Report Type: 
  Country: None (occurrence: None)
  Receive Date: 20080411
  Receipt Date: 20080401
  Transmission Date: 20081010
  Serious: Yes (Other)
  Sender: FDA-Public Use
  Company Number: JP-ROCHE-548117

PATIENT
  Sex: Female
  Weight: 45 kg

DRUGS (9)
  1. PEGASYS [Suspect]
     Route: 058
     Dates: start: 20070322, end: 20080130
  2. GASTER D [Concomitant]
     Route: 048
     Dates: start: 20080122, end: 20080129
  3. GASMOTIN [Concomitant]
     Route: 048
     Dates: start: 20080122, end: 20080129
  4. COUGHCODE-N [Concomitant]
     Route: 048
     Dates: start: 20080130, end: 20080201
  5. COUGHCODE-N [Concomitant]
     Route: 048
     Dates: start: 20080130, end: 20080201
  6. COUGHCODE-N [Concomitant]
     Route: 048
     Dates: start: 20080130, end: 20080201
  7. COUGHCODE-N [Concomitant]
     Route: 048
     Dates: start: 20080130, end: 20080201
  8. COUGHCODE-N [Concomitant]
     Route: 048
     Dates: start: 20080130, end: 20080201
  9. COUGHCODE-N [Concomitant]
     Route: 048
     Dates: start: 20080130, end: 20080201

REACTIONS (1)
  - APLASIA PURE RED CELL [None]
